FAERS Safety Report 8202169-X (Version None)
Quarter: 2012Q1

REPORT INFORMATION
  Report Type: 
  Country: None (occurrence: None)
  Receive Date: 20120312
  Receipt Date: 20120301
  Transmission Date: 20120608
  Serious: Yes (Death, Hospitalization)
  Sender: FDA-Public Use
  Company Number: JP-AMGEN-JPNCT2012015224

PATIENT
  Age: 62 Year
  Sex: Male
  Weight: 85 kg

DRUGS (16)
  1. PANITUMUMAB [Suspect]
     Dosage: 6 MG/KG, Q2WK
     Route: 041
     Dates: start: 20110222, end: 20110322
  2. LOCOID [Concomitant]
     Dosage: UNK
     Route: 062
  3. DIOVAN HCT [Concomitant]
     Dosage: UNK
     Route: 048
  4. ADALAT CC [Concomitant]
     Dosage: UNK
     Route: 048
  5. MYSER [Concomitant]
     Dosage: UNK
     Route: 062
  6. CRESTOR [Concomitant]
     Dosage: UNK
     Route: 048
  7. HIRUDOID [Concomitant]
     Dosage: UNK
     Route: 062
  8. FERROUS SULFATE TAB [Concomitant]
     Dosage: UNK
     Route: 048
  9. ALLOPURINOL [Concomitant]
     Dosage: UNK
     Route: 048
  10. URINORM [Concomitant]
     Dosage: UNK
     Route: 048
  11. WARFARIN SODIUM [Concomitant]
     Dosage: UNK
     Route: 048
  12. PANITUMUMAB [Suspect]
     Indication: COLORECTAL CANCER
     Dosage: 6 MG/KG, Q2WK
     Route: 041
     Dates: start: 20101012, end: 20110125
  13. RINDERON VG [Concomitant]
     Dosage: UNK
     Route: 062
  14. ALDACTONE [Concomitant]
     Dosage: UNK
     Route: 048
  15. URALYT U [Concomitant]
     Dosage: UNK
     Route: 048
  16. LANDEL [Concomitant]
     Dosage: UNK
     Route: 048

REACTIONS (8)
  - HYPOCALCAEMIA [None]
  - PARONYCHIA [None]
  - DIVERTICULUM INTESTINAL HAEMORRHAGIC [None]
  - COLORECTAL CANCER [None]
  - ACNE [None]
  - DRY SKIN [None]
  - CELLULITIS [None]
  - HYPOMAGNESAEMIA [None]
